FAERS Safety Report 17482117 (Version 2)
Quarter: 2020Q1

REPORT INFORMATION
  Report Type: Report from Study
  Country: JP (occurrence: JP)
  Receive Date: 20200302
  Receipt Date: 20200304
  Transmission Date: 20200409
  Serious: Yes (Death)
  Sender: FDA-Public Use
  Company Number: PHJP2019JP004237

PATIENT
  Age: 61 Year
  Sex: Female

DRUGS (2)
  1. CICLOSPORIN [Concomitant]
     Active Substance: CYCLOSPORINE
     Indication: APLASTIC ANAEMIA
     Dosage: 200 MG, UNK
     Route: 065
     Dates: start: 20171228, end: 20181018
  2. REVOLADE TAB [Suspect]
     Active Substance: ELTROMBOPAG
     Indication: APLASTIC ANAEMIA
     Dosage: 50 MG, UNK
     Route: 048
     Dates: start: 20180412, end: 20190124

REACTIONS (8)
  - Hyperbilirubinaemia [Fatal]
  - Blood bilirubin increased [Fatal]
  - Jaundice [Unknown]
  - Malaise [Unknown]
  - Malignant neoplasm of unknown primary site [Fatal]
  - Malignant neoplasm progression [Fatal]
  - Metastases to liver [Unknown]
  - Metastases to rectum [Unknown]

NARRATIVE: CASE EVENT DATE: 20190117
